FAERS Safety Report 16316527 (Version 2)
Quarter: 2019Q2

REPORT INFORMATION
  Report Type: Spontaneous
  Country: US (occurrence: US)
  Receive Date: 20190515
  Receipt Date: 20190520
  Transmission Date: 20190711
  Serious: No
  Sender: FDA-Public Use
  Company Number: US-BIOGEN-2019BI00737014

PATIENT
  Age: 15 Year
  Sex: Female

DRUGS (1)
  1. SPINRAZA [Suspect]
     Active Substance: NUSINERSEN
     Indication: SPINAL MUSCULAR ATROPHY
     Route: 037
     Dates: start: 20190506

REACTIONS (5)
  - Dizziness [Unknown]
  - Back pain [Not Recovered/Not Resolved]
  - Tremor [Unknown]
  - Headache [Unknown]
  - Head titubation [Unknown]

NARRATIVE: CASE EVENT DATE: 20190506
